FAERS Safety Report 11457540 (Version 2)
Quarter: 2015Q3

REPORT INFORMATION
  Report Type: Spontaneous
  Country: US (occurrence: US)
  Receive Date: 20150904
  Receipt Date: 20150908
  Transmission Date: 20151125
  Serious: No
  Sender: FDA-Public Use
  Company Number: PHEH2014US022905

PATIENT
  Sex: Female

DRUGS (5)
  1. VIVELLE DOT [Suspect]
     Active Substance: ESTRADIOL
     Dosage: 0.5 OT, UNK
     Route: 062
  2. VIVELLE DOT [Suspect]
     Active Substance: ESTRADIOL
     Dosage: 0.75 OT, UNK
     Route: 065
  3. IMITREX DF [Concomitant]
     Indication: PRODUCT USED FOR UNKNOWN INDICATION
     Route: 065
  4. VIVELLE DOT [Suspect]
     Active Substance: ESTRADIOL
     Indication: PRODUCT USED FOR UNKNOWN INDICATION
     Dosage: 0.05 OT, UNK
     Route: 065
     Dates: start: 201202
  5. WELLBUTRIN [Concomitant]
     Active Substance: BUPROPION HYDROCHLORIDE
     Indication: PRODUCT USED FOR UNKNOWN INDICATION
     Route: 065

REACTIONS (10)
  - Feeling hot [Unknown]
  - Night sweats [Unknown]
  - Anxiety [Unknown]
  - Mental impairment [Unknown]
  - Blood oestrogen decreased [Unknown]
  - Feeling abnormal [Unknown]
  - Insomnia [Unknown]
  - Migraine [Unknown]
  - Confusional state [Unknown]
  - Stress [Unknown]
